FAERS Safety Report 24129774 (Version 1)
Quarter: 2024Q3

REPORT INFORMATION
  Report Type: Spontaneous
  Country: FI (occurrence: FI)
  Receive Date: 20240724
  Receipt Date: 20240724
  Transmission Date: 20241017
  Serious: Yes (Hospitalization, Other)
  Sender: NOVO NORDISK
  Company Number: None

PATIENT
  Age: 80 Year
  Sex: Female
  Weight: 86 kg

DRUGS (12)
  1. HYDROCHLOROTHIAZIDE [Suspect]
     Active Substance: HYDROCHLOROTHIAZIDE
     Indication: Product used for unknown indication
     Dosage: 25 MG, 1X PER DAY
     Dates: start: 20240109, end: 20240110
  2. HYDROCHLOROTHIAZIDE [Suspect]
     Active Substance: HYDROCHLOROTHIAZIDE
     Dosage: 12.5 MG, 1X PER DAY
     Dates: start: 20240115
  3. TELMISARTAN [Suspect]
     Active Substance: TELMISARTAN
     Dosage: UNK
     Dates: start: 20240115
  4. TELMISARTAN [Suspect]
     Active Substance: TELMISARTAN
     Indication: Product used for unknown indication
     Dosage: UNK
     Dates: start: 20240110, end: 20240110
  5. FUROSEMIDE [Suspect]
     Active Substance: FUROSEMIDE
     Dosage: 60 MG, QD(40 MG+ 20 MG, PER DAY)
     Dates: start: 20240115
  6. FUROSEMIDE [Suspect]
     Active Substance: FUROSEMIDE
     Dosage: 20 MG, 2X PER DAY
  7. FUROSEMIDE [Suspect]
     Active Substance: FUROSEMIDE
     Dosage: 40 MG, 2X PER DAY
     Dates: end: 20240110
  8. FUROSEMIDE [Suspect]
     Active Substance: FUROSEMIDE
     Dosage: 20 MG, 2X PER DAY
     Dates: start: 20240112, end: 20240114
  9. FUROSEMIDE [Suspect]
     Active Substance: FUROSEMIDE
     Indication: Diuretic therapy
     Dosage: 120 MG, PER DAY (DOUBLE DOSE OF THE MORNING MEDICATIONS AND NORMAL DOSE OF THE EVENING MEDICATIONS)
     Dates: start: 20240109, end: 20240109
  10. BISOPROLOL [Suspect]
     Active Substance: BISOPROLOL\BISOPROLOL FUMARATE
     Dosage: UNK
     Dates: start: 20240112
  11. BISOPROLOL [Suspect]
     Active Substance: BISOPROLOL\BISOPROLOL FUMARATE
     Indication: Product used for unknown indication
     Dosage: UNK
     Dates: start: 20240110, end: 20240110
  12. SEMAGLUTIDE [Suspect]
     Active Substance: SEMAGLUTIDE
     Indication: Dementia Alzheimer^s type
     Dosage: UNK
     Dates: start: 20220702, end: 20231113

REACTIONS (4)
  - Depressed level of consciousness [Recovered/Resolved]
  - Bradycardia [Unknown]
  - Hypotension [Unknown]
  - Product use in unapproved indication [Unknown]

NARRATIVE: CASE EVENT DATE: 20220702
